FAERS Safety Report 10100664 (Version 1)
Quarter: 2014Q2

REPORT INFORMATION
  Report Type: Spontaneous
  Country: GB (occurrence: GB)
  Receive Date: 20140423
  Receipt Date: 20140423
  Transmission Date: 20141212
  Serious: Yes (Other)
  Sender: FDA-Public Use
  Company Number: GB-BAUSCH-BL-2014-001944

PATIENT
  Age: 56 Year
  Sex: Female

DRUGS (7)
  1. PREDNISOLONE [Suspect]
     Indication: ASTHMA
     Route: 048
  2. PREDNISOLONE [Suspect]
     Indication: ECZEMA
  3. AZATHIOPRINE [Suspect]
     Indication: IMMUNOSUPPRESSION
  4. AZATHIOPRINE [Suspect]
     Indication: STEROID THERAPY
  5. HYDROCORTISONE [Suspect]
     Indication: DERMATITIS ATOPIC
     Route: 061
  6. BECLOMETHASONE DIPROPIONATE [Concomitant]
     Indication: ASTHMA
  7. BETAMETHASONE VALERATE [Concomitant]
     Indication: PRODUCT USED FOR UNKNOWN INDICATION
     Route: 061

REACTIONS (1)
  - Cushing^s syndrome [Unknown]
